FAERS Safety Report 21518486 (Version 1)
Quarter: 2022Q4

REPORT INFORMATION
  Report Type: Spontaneous
  Country: US (occurrence: US)
  Receive Date: 20221028
  Receipt Date: 20221028
  Transmission Date: 20230113
  Serious: Yes (Other)
  Sender: FDA-Public Use
  Company Number: US-CELLTRION INC.-2022US017689

PATIENT

DRUGS (2)
  1. TRUXIMA [Suspect]
     Active Substance: RITUXIMAB-ABBS
     Indication: Nervous system disorder
     Dosage: 1000 MG DAY 1-2 EVERY 6 MONTHS
     Dates: start: 20220603
  2. TRUXIMA [Suspect]
     Active Substance: RITUXIMAB-ABBS
     Indication: Optic neuritis

REACTIONS (3)
  - Optic neuritis [Unknown]
  - Nervous system disorder [Unknown]
  - Off label use [Unknown]
